FAERS Safety Report 9000034 (Version 2)
Quarter: 2013Q1

REPORT INFORMATION
  Report Type: Spontaneous
  Country: US (occurrence: US)
  Receive Date: 20130102
  Receipt Date: 20130208
  Transmission Date: 20140127
  Serious: Yes (Hospitalization, Congenital Anomaly, Other)
  Sender: FDA-Public Use
  Company Number: US-PFIZER INC-2012329647

PATIENT
  Sex: Male

DRUGS (7)
  1. ZOLOFT [Suspect]
     Indication: DEPRESSION
     Dosage: UNK
     Route: 064
     Dates: start: 200008
  2. CYCLOBENZAPRINE [Concomitant]
     Dosage: UNK
     Route: 064
  3. OXYCODONE [Concomitant]
     Dosage: UNK
     Route: 064
  4. ETODOLAC [Concomitant]
     Dosage: UNK
     Route: 064
  5. CEPHALEXIN [Concomitant]
     Dosage: UNK
     Route: 064
  6. AMOXICLAV [Concomitant]
     Dosage: UNK
     Route: 064
  7. BUSPAR [Concomitant]
     Dosage: UNK
     Route: 064

REACTIONS (18)
  - Maternal exposure timing unspecified [Unknown]
  - Atrial septal defect [Unknown]
  - Cerebrovascular accident [Unknown]
  - Respiratory failure [Unknown]
  - Shock [Unknown]
  - Cerebral infarction [Unknown]
  - Failure to thrive [Unknown]
  - Metabolic acidosis [Unknown]
  - Infection [Unknown]
  - Left ventricular dysfunction [Unknown]
  - Diarrhoea [Unknown]
  - Weight gain poor [Unknown]
  - Rash [Unknown]
  - White blood cell count increased [Unknown]
  - C-reactive protein increased [Unknown]
  - Blindness unilateral [Unknown]
  - Visual field defect [Unknown]
  - Milk allergy [Unknown]
